FAERS Safety Report 9975880 (Version 2)
Quarter: 2014Q1

REPORT INFORMATION
  Report Type: Spontaneous
  Country: DE (occurrence: DE)
  Receive Date: 20140306
  Receipt Date: 20140313
  Transmission Date: 20141002
  Serious: Yes (Other)
  Sender: FDA-Public Use
  Company Number: CHPA2014DE003319

PATIENT
  Age: 29 Year
  Sex: Male
  Weight: 88 kg

DRUGS (1)
  1. NICOTINELL TTS 30 [Suspect]
     Indication: SMOKING CESSATION THERAPY
     Dosage: 21 MG, QD
     Route: 062
     Dates: start: 20140206, end: 20140211

REACTIONS (4)
  - Heart rate increased [Recovered/Resolved]
  - Cardiovascular disorder [Recovered/Resolved]
  - Activities of daily living impaired [Recovered/Resolved]
  - Dyspnoea [Recovered/Resolved]
